FAERS Safety Report 23248204 (Version 3)
Quarter: 2023Q4

REPORT INFORMATION
  Report Type: Spontaneous
  Country: DE (occurrence: DE)
  Receive Date: 20231130
  Receipt Date: 20231221
  Transmission Date: 20240109
  Serious: Yes (Hospitalization, Other)
  Sender: FDA-Public Use
  Company Number: DE-BAYER-2023A170359

PATIENT
  Age: 83 Year
  Sex: Male

DRUGS (1)
  1. XARELTO [Suspect]
     Active Substance: RIVAROXABAN
     Indication: Atrial fibrillation
     Dosage: 20 MG
     Route: 048

REACTIONS (3)
  - Nerve compression [Not Recovered/Not Resolved]
  - Pulmonary oedema [Unknown]
  - Overdose [Unknown]

NARRATIVE: CASE EVENT DATE: 20231115
